FAERS Safety Report 6962497-2 (Version None)
Quarter: 2010Q3

REPORT INFORMATION
  Report Type: 
  Country: None (occurrence: None)
  Receive Date: 20100902
  Receipt Date: 20100823
  Transmission Date: 20110219
  Serious: Yes (Other)
  Sender: FDA-Public Use
  Company Number: PHHY2010FR44981

PATIENT
  Sex: Female
  Weight: 76 kg

DRUGS (3)
  1. EXFORGE [Suspect]
     Indication: HYPERTENSION
     Dosage: 80/5 MG, (ONCE PER DAY)
     Route: 048
     Dates: start: 20080911
  2. FORADIL [Concomitant]
     Indication: ASTHMA
     Dosage: 2 BUCCAL INHALATIONS/DAY
  3. MIFLASONE [Concomitant]
     Indication: ASTHMA
     Dosage: 2 BUCCAL INHALATIONS/DAY

REACTIONS (3)
  - EXTRASYSTOLES [None]
  - PAIN IN EXTREMITY [None]
  - TENDONITIS [None]
